FAERS Safety Report 20254652 (Version 1)
Quarter: 2021Q4

REPORT INFORMATION
  Report Type: Spontaneous
  Country: CN (occurrence: CN)
  Receive Date: 20211230
  Receipt Date: 20211230
  Transmission Date: 20220303
  Serious: Yes (Other)
  Sender: FDA-Public Use
  Company Number: CN-SA-SAC20211224001114

PATIENT
  Age: 29 Year
  Sex: Female
  Weight: 54 kg

DRUGS (4)
  1. OXALIPLATIN [Suspect]
     Active Substance: OXALIPLATIN
     Indication: Chemotherapy
     Dosage: 185 MG
     Route: 041
     Dates: start: 20211201, end: 20211201
  2. TEGAFUR [Suspect]
     Active Substance: TEGAFUR
     Indication: Chemotherapy
     Dosage: 60 MG
     Route: 041
     Dates: start: 20211201, end: 20211206
  3. TEGAFUR [Suspect]
     Active Substance: TEGAFUR
     Indication: Chemotherapy
     Dosage: 50 MG
     Route: 041
     Dates: start: 20211201, end: 20211206
  4. GLUCOSE INJECTION MP [Concomitant]
     Dosage: 500 ML
     Route: 041
     Dates: start: 20211201, end: 20211201

REACTIONS (1)
  - Myelosuppression [Recovering/Resolving]
